FAERS Safety Report 6392362-3 (Version None)
Quarter: 2009Q4

REPORT INFORMATION
  Report Type: 
  Country: None (occurrence: None)
  Receive Date: 20091007
  Receipt Date: 20090925
  Transmission Date: 20100525
  Serious: Yes (Other)
  Sender: FDA-Public Use
  Company Number: PHHY2009MX41693

PATIENT
  Sex: Female

DRUGS (2)
  1. DIOVAN HCT [Suspect]
     Indication: HYPERTENSION
     Dosage: 1 TABLET (160/12.5 MG) PER DAY
     Dates: start: 20080701
  2. FIRIPINA [Concomitant]
     Indication: HYPERTENSION
     Dosage: 2 DF, BID
     Dates: start: 20080801

REACTIONS (2)
  - KNEE OPERATION [None]
  - ROAD TRAFFIC ACCIDENT [None]
